FAERS Safety Report 9426914 (Version 1)
Quarter: 2013Q3

REPORT INFORMATION
  Report Type: Spontaneous
  Country: US (occurrence: None)
  Receive Date: 20130729
  Receipt Date: 20130729
  Transmission Date: 20140515
  Serious: No
  Sender: FDA-Public Use
  Company Number: None

PATIENT
  Sex: Female
  Weight: 79.83 kg

DRUGS (1)
  1. LEVOTHYROXINE [Suspect]
     Dosage: 6-7 WEEKS
     Route: 048

REACTIONS (2)
  - Thyroid disorder [None]
  - Product substitution issue [None]
